FAERS Safety Report 8814848 (Version 1)
Quarter: 2012Q4

REPORT INFORMATION
  Report Type: 
  Country: GB (occurrence: GB)
  Receive Date: 20120928
  Receipt Date: 20120928
  Transmission Date: 20130627
  Serious: Yes (Hospitalization)
  Sender: FDA-Public Use
  Company Number: GB-PFIZER INC-2012237422

PATIENT
  Age: 44 Year
  Sex: Female
  Weight: 45.6 kg

DRUGS (13)
  1. GENOTROPIN [Suspect]
     Dosage: 0.2 mg/day, 7 injections/week
     Route: 058
     Dates: start: 20041108
  2. THYROXINE [Concomitant]
     Indication: BLOOD THYROID STIMULATING HORMONE DECREASED
     Dosage: UNK
     Dates: start: 19760701
  3. THYROXINE [Concomitant]
     Indication: PRIMARY HYPOGONADISM
  4. AMLODIPINE [Concomitant]
     Indication: ESSENTIAL HYPERTENSION
     Dosage: UNK
     Dates: start: 20020701
  5. DIDRONEL PMO ^NORWICH EATON^ [Concomitant]
     Indication: OSTEOPOROSIS
     Dosage: UNK
     Dates: start: 20010110
  6. SIMVASTATIN [Concomitant]
     Indication: HYPERLIPIDAEMIA
     Dosage: UNK
     Dates: start: 20021215
  7. ASPIRIN ^BAYER^ [Concomitant]
     Indication: CARDIOVASCULAR DISORDER
     Dosage: UNK
     Dates: start: 20030127
  8. LOESTRIN [Concomitant]
     Indication: BLOOD LUTEINISING HORMONE DECREASED
     Dosage: UNK
     Dates: start: 20030127
  9. LOESTRIN [Concomitant]
     Indication: BLOOD FOLLICLE STIMULATING HORMONE DECREASED
  10. LOESTRIN [Concomitant]
     Indication: HYPOGONADISM FEMALE
  11. METFORMIN [Concomitant]
     Indication: DIABETES MELLITUS
     Dosage: UNK
     Dates: start: 20040324
  12. GLICLAZIDE [Concomitant]
     Indication: DIABETES MELLITUS
     Dosage: UNK
     Dates: start: 20030611
  13. RAMIPRIL [Concomitant]
     Indication: ESSENTIAL HYPERTENSION
     Dosage: UNK
     Dates: start: 20041105

REACTIONS (1)
  - Blood growth hormone abnormal [Unknown]
